FAERS Safety Report 5176785-6 (Version None)
Quarter: 2006Q4

REPORT INFORMATION
  Report Type: 
  Country: None (occurrence: None)
  Receive Date: 20061218
  Receipt Date: 20061205
  Transmission Date: 20070319
  Serious: Yes (Other)
  Sender: FDA-Public Use
  Company Number: US-AMGEN-US202583

PATIENT
  Sex: Female

DRUGS (2)
  1. ENBREL [Suspect]
     Indication: BEHCET'S SYNDROME
     Route: 058
     Dates: start: 20030101
  2. METHOTREXATE [Concomitant]
     Dates: start: 20030101, end: 20061031

REACTIONS (2)
  - NEURILEMMOMA [None]
  - PARATHYROID TUMOUR BENIGN [None]
